FAERS Safety Report 9869718 (Version 1)
Quarter: 2014Q1

REPORT INFORMATION
  Report Type: Spontaneous
  Country: US (occurrence: US)
  Receive Date: 20140205
  Receipt Date: 20140205
  Transmission Date: 20141002
  Serious: No
  Sender: FDA-Public Use
  Company Number: US-GLAXOSMITHKLINE-A1008379A

PATIENT
  Age: 55 Year
  Sex: Male

DRUGS (8)
  1. FONDAPARINUX SODIUM [Suspect]
     Indication: RED BLOOD CELL COUNT INCREASED
     Dosage: 7.5MG PER DAY
     Route: 058
     Dates: start: 2011, end: 2011
  2. ANAGRELIDE [Concomitant]
  3. PRAVASTATIN [Concomitant]
  4. AMLODIPINE [Concomitant]
  5. LISINOPRIL [Concomitant]
  6. CETIRIZINE [Concomitant]
  7. INSULIN [Concomitant]
  8. HYDROXYUREA [Concomitant]

REACTIONS (3)
  - Hypersensitivity [Recovered/Resolved]
  - Dyspnoea [Unknown]
  - Swollen tongue [Unknown]
